FAERS Safety Report 7808454-5 (Version None)
Quarter: 2011Q4

REPORT INFORMATION
  Report Type: 
  Country: None (occurrence: None)
  Receive Date: 20111011
  Receipt Date: 20111011
  Transmission Date: 20120403
  Serious: Yes (Hospitalization)
  Sender: FDA-Public Use
  Company Number: None

PATIENT
  Sex: Female
  Weight: 79.4 kg

DRUGS (5)
  1. RITUXIMAB [Suspect]
     Indication: CHRONIC LYMPHOCYTIC LEUKAEMIA
     Dosage: 713 MG DY6 1 EVERY 28 DAYS IV
     Route: 042
     Dates: start: 20111006
  2. PREDNISONE [Concomitant]
  3. BACTRIM DS [Concomitant]
  4. BENDAMUSTINE [Suspect]
     Indication: CHRONIC LYMPHOCYTIC LEUKAEMIA
     Dosage: 171 MG X 2 DYS 1,2 EVERY 28 D IV
     Route: 042
     Dates: start: 20111006
  5. BENDAMUSTINE [Suspect]
     Indication: CHRONIC LYMPHOCYTIC LEUKAEMIA
     Dosage: 171 MG X 2 DYS 1,2 EVERY 28 D IV
     Route: 042
     Dates: start: 20111007

REACTIONS (9)
  - HYPOTENSION [None]
  - VOMITING [None]
  - DYSPNOEA [None]
  - NAUSEA [None]
  - WHEEZING [None]
  - SEPSIS [None]
  - CARDIAC DISORDER [None]
  - NEUTROPENIA [None]
  - ATELECTASIS [None]
